FAERS Safety Report 7131694-8 (Version None)
Quarter: 2010Q4

REPORT INFORMATION
  Report Type: 
  Country: None (occurrence: None)
  Receive Date: 20101201
  Receipt Date: 20101119
  Transmission Date: 20110411
  Serious: Yes (Hospitalization)
  Sender: FDA-Public Use
  Company Number: US-GENENTECH-310065

PATIENT
  Age: 46 Year
  Sex: Female

DRUGS (1)
  1. RITUXAN [Suspect]
     Indication: THROMBOTIC THROMBOCYTOPENIC PURPURA
     Dosage: 4 UNK, 4/WEEK

REACTIONS (1)
  - BLOOD PRESSURE DECREASED [None]
